FAERS Safety Report 23112206 (Version 1)
Quarter: 2023Q4

REPORT INFORMATION
  Report Type: Report from Study
  Country: JP (occurrence: JP)
  Receive Date: 20231026
  Receipt Date: 20231026
  Transmission Date: 20240109
  Serious: Yes (Hospitalization)
  Sender: FDA-Public Use
  Company Number: JP-TAKEDA-2023TJP013691

PATIENT
  Age: 72 Year
  Sex: Male
  Weight: 68 kg

DRUGS (15)
  1. PANITUMUMAB [Suspect]
     Active Substance: PANITUMUMAB
     Indication: Adenocarcinoma of colon
     Dosage: 400 MILLIGRAM, Q2WK
     Route: 065
     Dates: start: 20210428, end: 20210511
  2. PANITUMUMAB [Suspect]
     Active Substance: PANITUMUMAB
     Dosage: 320 MILLIGRAM, Q2WK
     Route: 065
     Dates: start: 20210526, end: 20210609
  3. PANITUMUMAB [Suspect]
     Active Substance: PANITUMUMAB
     Dosage: 220 MILLIGRAM, Q2WK
     Route: 065
     Dates: start: 20210714, end: 20210714
  4. IRINOTECAN [Suspect]
     Active Substance: IRINOTECAN
     Indication: Adenocarcinoma of colon
     Dosage: UNK, Q2WEEKS
     Route: 065
  5. IRINOTECAN [Suspect]
     Active Substance: IRINOTECAN
     Dosage: 185 MILLIGRAM, Q2WEEKS
     Route: 065
     Dates: start: 20210428, end: 20210511
  6. IRINOTECAN [Suspect]
     Active Substance: IRINOTECAN
     Dosage: 140 MILLIGRAM, Q2WEEKS
     Route: 065
     Dates: start: 20210609, end: 20210609
  7. VONOPRAZAN FUMARATE [Concomitant]
     Active Substance: VONOPRAZAN FUMARATE
     Dosage: UNK
     Route: 065
  8. MINOCYCLINE HYDROCHLORIDE [Concomitant]
     Active Substance: MINOCYCLINE HYDROCHLORIDE
     Dosage: UNK
     Route: 065
  9. DEXAMETHASONE [Concomitant]
     Active Substance: DEXAMETHASONE
     Dosage: UNK
     Route: 065
  10. LOPERAMIDE HYDROCHLORIDE [Concomitant]
     Active Substance: LOPERAMIDE HYDROCHLORIDE
     Dosage: UNK
     Route: 065
  11. AMLODIPINE BESYLATE [Concomitant]
     Active Substance: AMLODIPINE BESYLATE
     Dosage: UNK
     Route: 065
  12. Novamin [Concomitant]
     Dosage: UNK
     Route: 065
  13. ALLOPURINOL [Concomitant]
     Active Substance: ALLOPURINOL
     Dosage: UNK
     Route: 065
  14. HEPARINOID [Concomitant]
     Dosage: UNK
     Route: 065
  15. LOXOPROFEN SODIUM [Concomitant]
     Active Substance: LOXOPROFEN SODIUM
     Dosage: UNK
     Route: 065

REACTIONS (6)
  - Acute kidney injury [Unknown]
  - Blood magnesium decreased [Not Recovered/Not Resolved]
  - Diarrhoea [Unknown]
  - Decreased appetite [Unknown]
  - Nausea [Unknown]
  - Rash [Unknown]

NARRATIVE: CASE EVENT DATE: 20210622
